FAERS Safety Report 21622487 (Version 1)
Quarter: 2022Q4

REPORT INFORMATION
  Report Type: Spontaneous
  Country: US (occurrence: None)
  Receive Date: 20221118
  Receipt Date: 20221118
  Transmission Date: 20230112
  Serious: Yes (Life-Threatening, Hospitalization, Disabling, Other)
  Sender: FDA-Public Use
  Company Number: None

PATIENT
  Age: 65 Year
  Sex: Male
  Weight: 77.85 kg

DRUGS (10)
  1. OPDIVO [Suspect]
     Active Substance: NIVOLUMAB
     Indication: Malignant melanoma
     Dosage: OTHER FREQUENCY : EVERY TWO WEEKS;?
     Route: 042
     Dates: start: 20210802
  2. FLUDROCORTISONE ACETATE [Concomitant]
     Active Substance: FLUDROCORTISONE ACETATE
  3. HYDROCORTISONE [Concomitant]
     Active Substance: HYDROCORTISONE
  4. TESTOSTERONE [Concomitant]
     Active Substance: TESTOSTERONE
  5. FINASTERIDE [Concomitant]
     Active Substance: FINASTERIDE
  6. ASPIRIN [Concomitant]
     Active Substance: ASPIRIN
  7. VITAMINS [Concomitant]
     Active Substance: VITAMINS
  8. reishi mushroom extract [Concomitant]
  9. VITAMIN D3 [Concomitant]
     Active Substance: CHOLECALCIFEROL
  10. FISH OIL [Concomitant]
     Active Substance: FISH OIL

REACTIONS (3)
  - Adrenal gland injury [None]
  - Addison^s disease [None]
  - Adrenal insufficiency [None]

NARRATIVE: CASE EVENT DATE: 20210920
